FAERS Safety Report 5645265-3 (Version None)
Quarter: 2008Q1

REPORT INFORMATION
  Report Type: 
  Country: None (occurrence: None)
  Receive Date: 20080229
  Receipt Date: 20080229
  Transmission Date: 20080703
  Serious: Yes (Other)
  Sender: FDA-Public Use
  Company Number: A0712581A

PATIENT
  Age: 68 Year
  Sex: Female

DRUGS (8)
  1. ALLI [Suspect]
     Indication: WEIGHT LOSS DIET
     Route: 048
     Dates: start: 20070611
  2. NEURONTIN [Concomitant]
  3. ZANAFLEX [Concomitant]
  4. CLONAZEPAM [Concomitant]
  5. NABUMETONE [Concomitant]
  6. CYMBALTA [Concomitant]
  7. LIPITOR [Concomitant]
  8. ALLEGRA [Concomitant]

REACTIONS (6)
  - DIARRHOEA [None]
  - DIZZINESS [None]
  - FALL [None]
  - PAIN IN EXTREMITY [None]
  - UPPER LIMB FRACTURE [None]
  - WEIGHT FLUCTUATION [None]
